FAERS Safety Report 5450988-5 (Version None)
Quarter: 2007Q3

REPORT INFORMATION
  Report Type: 
  Country: None (occurrence: None)
  Receive Date: 20070913
  Receipt Date: 20070906
  Transmission Date: 20080115
  Serious: Yes (Other)
  Sender: FDA-Public Use
  Company Number: US-JNJFOC-20070901462

PATIENT
  Sex: Female
  Weight: 58.51 kg

DRUGS (8)
  1. FENTANYL TRANSDERMAL SYSTEM [Suspect]
     Route: 062
  2. FENTANYL TRANSDERMAL SYSTEM [Suspect]
     Indication: SYSTEMIC LUPUS ERYTHEMATOSUS
     Route: 062
  3. FENTANYL TRANSDERMAL SYSTEM [Suspect]
     Indication: FIBROMYALGIA
     Route: 062
  4. ACIPHEX [Concomitant]
     Indication: GASTROOESOPHAGEAL REFLUX DISEASE
     Route: 048
  5. PREDNISONE [Concomitant]
     Indication: RHEUMATOID ARTHRITIS
     Route: 048
  6. TEMAZEPAM [Concomitant]
     Indication: SLEEP DISORDER
     Dosage: AT BEDTIME
     Route: 048
  7. SYNTHROID [Concomitant]
     Indication: THYROID DISORDER
     Route: 048
  8. NOVOLOG [Concomitant]
     Indication: DIABETES MELLITUS
     Dosage: AS NEEDED
     Route: 058

REACTIONS (6)
  - DRUG ADMINISTERED AT INAPPROPRIATE SITE [None]
  - INADEQUATE ANALGESIA [None]
  - INAPPROPRIATE SCHEDULE OF DRUG ADMINISTRATION [None]
  - LUNG DISORDER [None]
  - MUSCLE SPASMS [None]
  - PHARMACEUTICAL PRODUCT COMPLAINT [None]
